FAERS Safety Report 9780354 (Version 3)
Quarter: 2014Q1

REPORT INFORMATION
  Report Type: Spontaneous
  Country: DE (occurrence: DE)
  Receive Date: 20131224
  Receipt Date: 20140313
  Transmission Date: 20141002
  Serious: Yes (Hospitalization, Other)
  Sender: FDA-Public Use
  Company Number: DE-009507513-1308DEU003994

PATIENT
  Sex: Female

DRUGS (1)
  1. BIVIOL [Suspect]
     Dosage: UNK
     Route: 048

REACTIONS (5)
  - Cyst removal [Unknown]
  - Ovarian cyst [Recovered/Resolved]
  - Menstruation irregular [Unknown]
  - Metrorrhagia [Unknown]
  - Product colour issue [Unknown]
